FAERS Safety Report 7893741-5 (Version None)
Quarter: 2011Q4

REPORT INFORMATION
  Report Type: 
  Country: None (occurrence: None)
  Receive Date: 20111104
  Receipt Date: 20111021
  Transmission Date: 20120403
  Serious: Yes (Hospitalization)
  Sender: FDA-Public Use
  Company Number: PHHO2011US16691

PATIENT
  Sex: Male
  Weight: 75 kg

DRUGS (2)
  1. PREDNISONE [Suspect]
     Dosage: 5 MG, UNK
  2. MYCOPHENOLATE MOFETIL [Suspect]
     Indication: RENAL TRANSPLANT
     Dosage: 1000 MG, BID
     Route: 048
     Dates: start: 20110803

REACTIONS (1)
  - HAEMATOCHEZIA [None]
